FAERS Safety Report 9016330 (Version 2)
Quarter: 2013Q3

REPORT INFORMATION
  Report Type: Spontaneous
  Country: US (occurrence: US)
  Receive Date: 20130116
  Receipt Date: 20130911
  Transmission Date: 20140515
  Serious: Yes (Hospitalization)
  Sender: FDA-Public Use
  Company Number: US-B.I. PHARMACEUTICALS,INC./RIDGEFIELD-2013-BI-00466BP

PATIENT
  Age: 59 Year
  Sex: Female
  Weight: 79.38 kg

DRUGS (12)
  1. PRADAXA [Suspect]
     Indication: ANTICOAGULANT THERAPY
     Dates: start: 201107, end: 201202
  2. PYRIDOSTIGMINE [Concomitant]
  3. MORPHINE [Concomitant]
  4. SINGULAIR [Concomitant]
  5. CARTIA [Concomitant]
  6. MEPERIDINE [Concomitant]
  7. AMIODARONE [Concomitant]
  8. OMEPRAZOLE [Concomitant]
  9. MYCOPHENOLATE [Concomitant]
  10. DIAZEPAM [Concomitant]
  11. CELEBREX [Concomitant]
  12. ONDANSETRON [Concomitant]

REACTIONS (1)
  - Haemorrhage [Unknown]
